FAERS Safety Report 10084995 (Version 1)
Quarter: 2014Q2

REPORT INFORMATION
  Report Type: Spontaneous
  Country: US (occurrence: US)
  Receive Date: 20140417
  Receipt Date: 20140417
  Transmission Date: 20141212
  Serious: Yes (Other)
  Sender: FDA-Public Use
  Company Number: US-ASTRAZENECA-2014SE25628

PATIENT
  Sex: Male

DRUGS (1)
  1. ZOLADEX [Suspect]
     Indication: PRIAPISM
     Dosage: 2 DOSES OF 10.8 MG
     Route: 058

REACTIONS (3)
  - Priapism [Unknown]
  - Drug ineffective for unapproved indication [Unknown]
  - Off label use [Unknown]
